FAERS Safety Report 6231384-X (Version None)
Quarter: 2009Q2

REPORT INFORMATION
  Report Type: 
  Country: None (occurrence: None)
  Receive Date: 20090616
  Receipt Date: 20090609
  Transmission Date: 20091009
  Serious: Yes (Other)
  Sender: FDA-Public Use
  Company Number: B0579022A

PATIENT
  Sex: Female

DRUGS (3)
  1. ALLI [Suspect]
     Indication: DRUG USE FOR UNKNOWN INDICATION
     Route: 065
  2. SEROQUEL [Suspect]
     Indication: DEPRESSION
     Dosage: 300MG UNKNOWN
     Route: 065
  3. FLUOXETINE HCL [Suspect]
     Indication: DEPRESSION
     Dosage: 20MG UNKNOWN
     Route: 065

REACTIONS (2)
  - DYSPNOEA [None]
  - SEPSIS [None]
